FAERS Safety Report 11174915 (Version 1)
Quarter: 2015Q2

REPORT INFORMATION
  Report Type: Spontaneous
  Country: US (occurrence: None)
  Receive Date: 20150608
  Receipt Date: 20150608
  Transmission Date: 20150821
  Serious: Yes (Life-Threatening)
  Sender: FDA-Public Use
  Company Number: None

PATIENT
  Age: 72 Year
  Sex: Male

DRUGS (1)
  1. SILDENAFIL. [Suspect]
     Active Substance: SILDENAFIL
     Indication: PULMONARY ARTERIAL HYPERTENSION
     Route: 048
     Dates: start: 20150509, end: 20150605

REACTIONS (4)
  - Heart rate increased [None]
  - Product quality issue [None]
  - Product substitution issue [None]
  - Oxygen saturation decreased [None]

NARRATIVE: CASE EVENT DATE: 20150605
